FAERS Safety Report 19500471 (Version 4)
Quarter: 2021Q4

REPORT INFORMATION
  Report Type: Report from Study
  Country: US (occurrence: US)
  Receive Date: 20210707
  Receipt Date: 20211007
  Transmission Date: 20220303
  Serious: No
  Sender: FDA-Public Use
  Company Number: NVSC2021US150267

PATIENT
  Age: 69 Year
  Sex: Female

DRUGS (2)
  1. COSENTYX [Suspect]
     Active Substance: SECUKINUMAB
     Indication: Psoriasis
     Dosage: 300 MG, QMO (BENEATH THE SKIN, USUALLY VIA INJECTION)
     Route: 058
     Dates: start: 20201013
  2. COSENTYX [Suspect]
     Active Substance: SECUKINUMAB
     Dosage: 150 MG, QMO
     Route: 058

REACTIONS (3)
  - Coronavirus infection [Unknown]
  - Rash [Unknown]
  - Psoriasis [Unknown]

NARRATIVE: CASE EVENT DATE: 20210301
